FAERS Safety Report 5772942-6 (Version None)
Quarter: 2008Q2

REPORT INFORMATION
  Report Type: 
  Country: None (occurrence: None)
  Receive Date: 20080610
  Receipt Date: 20080531
  Transmission Date: 20081010
  Serious: Yes (Death, Other)
  Sender: FDA-Public Use
  Company Number: 06H-163-0311557-00

PATIENT
  Age: 50 Year
  Sex: Male
  Weight: 89 kg

DRUGS (8)
  1. PRECEDEX [Suspect]
     Indication: SEDATIVE THERAPY
     Dosage: 200 MCG, INTRAVENOUS
     Route: 042
     Dates: start: 20060901, end: 20060901
  2. FENTANYL [Concomitant]
  3. MIDAZOLAM HCL [Concomitant]
  4. HEPARIN [Concomitant]
  5. EPINEPHRINE (EPINPHRINE) [Concomitant]
  6. ATROPINE [Concomitant]
  7. DOPAMINE HCL [Concomitant]
  8. PROTAMINE SULFATE [Suspect]

REACTIONS (20)
  - AGITATION [None]
  - BRADYCARDIA [None]
  - BRAIN DEATH [None]
  - BRAIN HERNIATION [None]
  - CARDIAC FAILURE [None]
  - CARDIAC PERFORATION [None]
  - CARDIAC TAMPONADE [None]
  - CARDIOGENIC SHOCK [None]
  - CARDIOMEGALY [None]
  - CORONARY ARTERY STENOSIS [None]
  - ELECTROMECHANICAL DISSOCIATION [None]
  - HAEMODYNAMIC INSTABILITY [None]
  - HYPOTENSION [None]
  - HYPOXIC ENCEPHALOPATHY [None]
  - MYOCARDIAL INFARCTION [None]
  - MYOCARDIAL ISCHAEMIA [None]
  - PERICARDIAL HAEMORRHAGE [None]
  - PROCEDURAL COMPLICATION [None]
  - VENTRICULAR FIBRILLATION [None]
  - VENTRICULAR HYPOKINESIA [None]
